FAERS Safety Report 11569143 (Version 11)
Quarter: 2016Q2

REPORT INFORMATION
  Report Type: Spontaneous
  Country: CA (occurrence: CA)
  Receive Date: 20150929
  Receipt Date: 20160613
  Transmission Date: 20160815
  Serious: Yes (Hospitalization, Other)
  Sender: FDA-Public Use
  Company Number: CA-PFIZER INC-2015117041

PATIENT
  Age: 66 Year
  Sex: Female

DRUGS (6)
  1. XELJANZ [Suspect]
     Active Substance: TOFACITINIB CITRATE
     Dosage: UNK
     Dates: start: 201509
  2. XELJANZ [Suspect]
     Active Substance: TOFACITINIB CITRATE
     Dosage: 5 MG, 2X/DAY
     Route: 048
     Dates: start: 20160203
  3. XELJANZ [Suspect]
     Active Substance: TOFACITINIB CITRATE
     Indication: RHEUMATOID ARTHRITIS
     Dosage: 5 MG, 2X/DAY
     Route: 048
     Dates: start: 20150103, end: 20150828
  4. XELJANZ [Suspect]
     Active Substance: TOFACITINIB CITRATE
     Dosage: UNK
  5. SULFASALAZINE. [Concomitant]
     Active Substance: SULFASALAZINE
     Dosage: UNK UNK, 3X/DAY
     Route: 048
  6. TYLENOL WITH CODEINE [Concomitant]
     Active Substance: ACETAMINOPHEN\CODEINE PHOSPHATE
     Dosage: UNK

REACTIONS (20)
  - Drug ineffective [Unknown]
  - Pain in extremity [Recovering/Resolving]
  - Herpes zoster [Not Recovered/Not Resolved]
  - Initial insomnia [Recovering/Resolving]
  - Wound [Not Recovered/Not Resolved]
  - Hot flush [Unknown]
  - Arthralgia [Recovering/Resolving]
  - Influenza [Unknown]
  - Neuralgia [Not Recovered/Not Resolved]
  - Swelling face [Unknown]
  - Hypertension [Recovered/Resolved]
  - Productive cough [Not Recovered/Not Resolved]
  - Abdominal distension [Unknown]
  - Musculoskeletal stiffness [Not Recovered/Not Resolved]
  - Wound infection [Not Recovered/Not Resolved]
  - Sinus headache [Not Recovered/Not Resolved]
  - Back pain [Not Recovered/Not Resolved]
  - Anaemia [Not Recovered/Not Resolved]
  - Headache [Not Recovered/Not Resolved]
  - Middle insomnia [Recovering/Resolving]

NARRATIVE: CASE EVENT DATE: 201503
